FAERS Safety Report 16367066 (Version 2)
Quarter: 2019Q3

REPORT INFORMATION
  Report Type: Spontaneous
  Country: US (occurrence: US)
  Receive Date: 20190529
  Receipt Date: 20190729
  Transmission Date: 20191004
  Serious: No
  Sender: FDA-Public Use
  Company Number: US-SA-2019SA142824

PATIENT
  Age: 83 Year
  Sex: Male

DRUGS (1)
  1. TOUJEO [Suspect]
     Active Substance: INSULIN GLARGINE
     Indication: TYPE 2 DIABETES MELLITUS
     Dosage: 46 U, BID
     Route: 065
     Dates: start: 201701

REACTIONS (2)
  - Inappropriate schedule of product administration [Unknown]
  - Stomach mass [Unknown]
